FAERS Safety Report 5995033-8 (Version None)
Quarter: 2008Q4

REPORT INFORMATION
  Report Type: 
  Country: None (occurrence: None)
  Receive Date: 20081212
  Receipt Date: 20080912
  Transmission Date: 20090506
  Serious: No
  Sender: FDA-Public Use
  Company Number: US-ABBOTT-08P-163-0477546-00

PATIENT
  Sex: Male
  Weight: 120.31 kg

DRUGS (11)
  1. HUMIRA [Suspect]
     Indication: CROHN'S DISEASE
     Route: 058
     Dates: start: 20060701, end: 20060701
  2. HUMIRA [Suspect]
     Route: 058
  3. HUMIRA [Suspect]
     Route: 058
     Dates: end: 20080501
  4. HUMIRA [Suspect]
     Dates: start: 20080904, end: 20080904
  5. HUMIRA [Suspect]
     Dates: start: 20080911, end: 20080911
  6. HUMIRA [Suspect]
  7. METRONIDAZOLE [Concomitant]
     Indication: FISTULA
     Route: 048
  8. SULFASALAZINE [Concomitant]
     Indication: CROHN'S DISEASE
     Route: 048
  9. LOPERAMIDE HCL [Concomitant]
     Indication: CROHN'S DISEASE
     Route: 048
  10. BUDESONIDE [Concomitant]
     Indication: CROHN'S DISEASE
     Route: 048
  11. MESALAMINE [Concomitant]
     Indication: CROHN'S DISEASE
     Dosage: 2 DAILY
     Route: 054

REACTIONS (2)
  - CROHN'S DISEASE [None]
  - OVERDOSE [None]
